FAERS Safety Report 7082888-1 (Version None)
Quarter: 2010Q4

REPORT INFORMATION
  Report Type: 
  Country: None (occurrence: None)
  Receive Date: 20101104
  Receipt Date: 20101021
  Transmission Date: 20110411
  Serious: Yes (Other)
  Sender: FDA-Public Use
  Company Number: PHHY2010US38690

PATIENT
  Sex: Female

DRUGS (7)
  1. RECLAST [Suspect]
     Dosage: UNK
     Dates: start: 20100609
  2. COPAXONE [Concomitant]
  3. PROZAC [Concomitant]
  4. MILNACIPRAN [Concomitant]
  5. LYRICA [Concomitant]
  6. BACLOFEN [Concomitant]
  7. AMBIEN [Concomitant]

REACTIONS (11)
  - ASTHENIA [None]
  - FOOD INTOLERANCE [None]
  - GAIT DISTURBANCE [None]
  - HEADACHE [None]
  - MIGRAINE [None]
  - MULTIPLE SCLEROSIS RELAPSE [None]
  - MUSCLE SPASTICITY [None]
  - SYNCOPE [None]
  - URINARY TRACT INFECTION [None]
  - VIRAL INFECTION [None]
  - VOMITING [None]
